FAERS Safety Report 21240025 (Version 1)
Quarter: 2022Q3

REPORT INFORMATION
  Report Type: Spontaneous
  Country: US (occurrence: None)
  Receive Date: 20220821
  Receipt Date: 20220821
  Transmission Date: 20221027
  Serious: Yes (Other)
  Sender: FDA-Public Use
  Company Number: None

PATIENT
  Age: 7 Year
  Sex: Male
  Weight: 35.1 kg

DRUGS (2)
  1. MONTELUKAST [Suspect]
     Active Substance: MONTELUKAST SODIUM
     Indication: Multiple allergies
     Dosage: FREQUENCY : AT BEDTIME;?
     Route: 048
     Dates: start: 20220810, end: 20220820
  2. UNSPECIFIED INGREDIENT [Concomitant]
     Active Substance: UNSPECIFIED INGREDIENT

REACTIONS (4)
  - Suicidal ideation [None]
  - Aggression [None]
  - Emotional distress [None]
  - Decreased interest [None]

NARRATIVE: CASE EVENT DATE: 20220820
